FAERS Safety Report 7348627-1 (Version None)
Quarter: 2011Q1

REPORT INFORMATION
  Report Type: 
  Country: None (occurrence: None)
  Receive Date: 20110314
  Receipt Date: 20110303
  Transmission Date: 20110831
  Serious: Yes (Hospitalization)
  Sender: FDA-Public Use
  Company Number: US-BIOGENIDEC-2011BI008304

PATIENT
  Age: 59 Year
  Sex: Female

DRUGS (2)
  1. TYSABRI [Suspect]
     Indication: MULTIPLE SCLEROSIS
     Route: 042
     Dates: start: 20100816
  2. TYSABRI [Suspect]
     Route: 042
     Dates: start: 20071029, end: 20080930

REACTIONS (3)
  - MULTIPLE SCLEROSIS RELAPSE [None]
  - PALPITATIONS [None]
  - URINARY TRACT INFECTION [None]
